FAERS Safety Report 6732591-X (Version None)
Quarter: 2010Q2

REPORT INFORMATION
  Report Type: 
  Country: None (occurrence: None)
  Receive Date: 20100519
  Receipt Date: 20100506
  Transmission Date: 20101027
  Serious: Yes (Other)
  Sender: FDA-Public Use
  Company Number: PHHY2010BR29406

PATIENT
  Sex: Female
  Weight: 70 kg

DRUGS (7)
  1. DIOVAN [Suspect]
     Indication: HYPERTENSION
     Dosage: 1 TABLET/ TWICE A DAY (MORNING AND NIGHT).
     Route: 048
     Dates: start: 20010401
  2. ANGIPRESS [Concomitant]
     Indication: TACHYCARDIA
     Dosage: 1 TABLET/TWICE A DAY
  3. VETRION [Concomitant]
     Dosage: 1 VAGINAL APPLICATION A WEEK
     Dates: start: 20050101
  4. CENALFAN PLUS [Concomitant]
     Indication: STRESS
     Dosage: 1 TABLET/TWICE A DAY
  5. LORAX [Concomitant]
  6. ZETSIM [Concomitant]
     Indication: HYPERCHOLESTEROLAEMIA
     Dosage: 1 TABLET AT NIGHT
     Dates: start: 20100201
  7. NOOTRON [Concomitant]
     Indication: FATIGUE
     Dosage: 1 TABLET AT NIGHT

REACTIONS (5)
  - DEPRESSION [None]
  - DRY EYE [None]
  - INSOMNIA [None]
  - OSTEOPOROSIS [None]
  - STRESS [None]
